FAERS Safety Report 16377175 (Version 1)
Quarter: 2019Q2

REPORT INFORMATION
  Report Type: Spontaneous
  Country: US (occurrence: US)
  Receive Date: 20190531
  Receipt Date: 20190531
  Transmission Date: 20190711
  Serious: Yes (Hospitalization)
  Sender: FDA-Public Use
  Company Number: PHHY2019US121120

PATIENT
  Age: 51 Year
  Sex: Male

DRUGS (3)
  1. OMNIPAQUE [Suspect]
     Active Substance: IOHEXOL
     Indication: SPINAL OSTEOARTHRITIS
     Route: 008
  2. LIDOCAINE. [Suspect]
     Active Substance: LIDOCAINE
     Indication: SPINAL OSTEOARTHRITIS
     Route: 008
  3. METHYLPREDNISOLONE. [Suspect]
     Active Substance: METHYLPREDNISOLONE
     Indication: SPINAL OSTEOARTHRITIS
     Route: 008

REACTIONS (7)
  - Type I hypersensitivity [Unknown]
  - Dysphagia [Unknown]
  - Hypotension [Unknown]
  - Dysphonia [Unknown]
  - Erythema [Unknown]
  - Pruritus [Unknown]
  - Peripheral swelling [Unknown]
